FAERS Safety Report 9511870 (Version 3)
Quarter: 2013Q4

REPORT INFORMATION
  Report Type: Spontaneous
  Country: US (occurrence: US)
  Receive Date: 20130910
  Receipt Date: 20131025
  Transmission Date: 20140711
  Serious: Yes (Hospitalization, Other)
  Sender: FDA-Public Use
  Company Number: US-INCYTE CORPORATION-2013IN002025

PATIENT
  Sex: Female

DRUGS (2)
  1. JAKAFI [Suspect]
     Indication: MYELOFIBROSIS
     Dosage: 20 MG, BID
     Route: 048
     Dates: start: 201303, end: 201308
  2. JAKAFI [Suspect]
     Dosage: NOT SPECIFIED
     Route: 048
     Dates: start: 2013

REACTIONS (11)
  - Thrombosis [Unknown]
  - Haemorrhage [Unknown]
  - Gastrointestinal haemorrhage [Unknown]
  - Blood count abnormal [Unknown]
  - Diarrhoea [Unknown]
  - Abdominal discomfort [Unknown]
  - White blood cell count increased [Unknown]
  - Weight increased [Recovered/Resolved]
  - Contusion [Unknown]
  - Dizziness [Unknown]
  - Red blood cell count decreased [Unknown]
